FAERS Safety Report 6093580-4 (Version None)
Quarter: 2009Q1

REPORT INFORMATION
  Report Type: 
  Country: None (occurrence: None)
  Receive Date: 20090226
  Receipt Date: 20090214
  Transmission Date: 20090719
  Serious: Yes (Death, Hospitalization)
  Sender: FDA-Public Use
  Company Number: US-PFIZER INC-2009162427

PATIENT
  Sex: Female

DRUGS (11)
  1. DOXORUBICIN HCL [Suspect]
     Indication: BREAST CANCER
     Dosage: 50 MG/M2, EVERY 21DAYS
     Route: 042
     Dates: start: 20081120, end: 20081120
  2. CYCLOPHOSPHAMIDE [Suspect]
     Indication: BREAST CANCER
     Dosage: 500 MG/M2, EVERY 21DAYS
     Route: 042
     Dates: start: 20081120, end: 20081120
  3. TAXOTERE [Suspect]
     Indication: BREAST CANCER
     Dosage: 75 MG/M2, EVERY 21DAYS
     Route: 042
     Dates: start: 20081120, end: 20081120
  4. COLESTID [Concomitant]
     Dosage: UNK
     Dates: end: 20081101
  5. METOPROLOL [Concomitant]
     Dosage: UNK
     Dates: end: 20081101
  6. POTASSIUM [Concomitant]
     Dosage: UNK
     Dates: end: 20081101
  7. RANITIDINE [Concomitant]
     Dosage: UNK
     Dates: end: 20081101
  8. NAPROXEN [Concomitant]
     Dosage: UNK
     Dates: end: 20081101
  9. COLACE [Concomitant]
     Dosage: UNK
     Dates: end: 20081101
  10. ASPIRIN [Concomitant]
     Dosage: UNK
     Dates: end: 20081101
  11. LORATADINE [Concomitant]

REACTIONS (10)
  - ASTHENIA [None]
  - COLITIS [None]
  - DEHYDRATION [None]
  - HEART RATE INCREASED [None]
  - INFLAMMATORY BOWEL DISEASE [None]
  - INTESTINAL OBSTRUCTION [None]
  - LEUKOPENIA [None]
  - NAUSEA [None]
  - PYREXIA [None]
  - VOMITING [None]
